FAERS Safety Report 16783506 (Version 1)
Quarter: 2019Q3

REPORT INFORMATION
  Report Type: Spontaneous
  Country: PT (occurrence: PT)
  Receive Date: 20190907
  Receipt Date: 20190907
  Transmission Date: 20191005
  Serious: Yes (Hospitalization, Other)
  Sender: FDA-Public Use
  Company Number: PT-TEVA-2019-PT-1102847

PATIENT
  Age: 14 Year
  Weight: 45 kg

DRUGS (3)
  1. OLANZAPINE. [Suspect]
     Active Substance: OLANZAPINE
     Indication: PRODUCT USED FOR UNKNOWN INDICATION
     Dosage: 5 MG 1X/DAY
     Route: 048
     Dates: start: 20190806, end: 20190813
  2. VALPROIC ACID. [Concomitant]
     Active Substance: VALPROIC ACID
  3. CATAPRESAN [Concomitant]
     Active Substance: CLONIDINE
     Route: 048

REACTIONS (2)
  - Drug ineffective [Not Recovered/Not Resolved]
  - Product use issue [Not Recovered/Not Resolved]

NARRATIVE: CASE EVENT DATE: 20190806
